FAERS Safety Report 8424330-1 (Version None)
Quarter: 2012Q2

REPORT INFORMATION
  Report Type: 
  Country: None (occurrence: None)
  Receive Date: 20120608
  Receipt Date: 20110617
  Transmission Date: 20120825
  Serious: No
  Sender: FDA-Public Use
  Company Number: US-ASTRAZENECA-2011SE37259

PATIENT
  Sex: Female

DRUGS (2)
  1. RHINOCORT [Suspect]
     Route: 045
  2. PULMICORT [Suspect]
     Route: 055

REACTIONS (6)
  - INTERVERTEBRAL DISC PROTRUSION [None]
  - CONTINUOUS POSITIVE AIRWAY PRESSURE [None]
  - FATIGUE [None]
  - MULTIPLE CHEMICAL SENSITIVITY [None]
  - FIBROMYALGIA [None]
  - AMNESIA [None]
